FAERS Safety Report 5731801-5 (Version None)
Quarter: 2008Q2

REPORT INFORMATION
  Report Type: 
  Country: None (occurrence: None)
  Receive Date: 20080506
  Receipt Date: 20080506
  Transmission Date: 20081010
  Serious: Yes (Hospitalization)
  Sender: FDA-Public Use
  Company Number: None

PATIENT
  Age: 19 Year
  Sex: Female
  Weight: 47 kg

DRUGS (1)
  1. ENOXAPARIN SODIUM [Suspect]
     Indication: CONTRACEPTION
     Dosage: 150 MG OTHER IM
     Route: 030

REACTIONS (1)
  - DEEP VEIN THROMBOSIS [None]
